FAERS Safety Report 11060783 (Version 2)
Quarter: 2015Q2

REPORT INFORMATION
  Report Type: Spontaneous
  Country: FR (occurrence: FR)
  Receive Date: 20150423
  Receipt Date: 20150612
  Transmission Date: 20150821
  Serious: Yes (Other)
  Sender: FDA-Public Use
  Company Number: FR-OTSUKA-US-2015-11514

PATIENT

DRUGS (5)
  1. CYMBALTA [Concomitant]
     Active Substance: DULOXETINE HYDROCHLORIDE
     Indication: ANXIETY
     Dosage: 60 MG, PER DAY
     Route: 048
     Dates: end: 20150330
  2. ABILIFY MAINTENA [Suspect]
     Active Substance: ARIPIPRAZOLE
     Indication: SCHIZOPHRENIA
     Dosage: 400 MG, QM
     Route: 030
     Dates: start: 20150327, end: 20150331
  3. OPC-14597 [Suspect]
     Active Substance: CILOSTAZOL
     Indication: SCHIZOPHRENIA
     Dosage: 20 MG MILLIGRAM(S), PER DAY
     Route: 048
     Dates: end: 20150402
  4. OPC-14597 [Suspect]
     Active Substance: CILOSTAZOL
     Dosage: 20 MG, UNK
     Route: 048
     Dates: start: 20150429
  5. TEMESTA [Concomitant]
     Active Substance: LORAZEPAM
     Indication: ANXIETY
     Dosage: 2.5 MG, PER DAY
     Route: 048
     Dates: end: 20150330

REACTIONS (3)
  - Agitation [Recovered/Resolved]
  - Inappropriate schedule of drug administration [Recovered/Resolved]
  - Psychotic disorder [Recovered/Resolved]

NARRATIVE: CASE EVENT DATE: 20150331
